FAERS Safety Report 5062470-8 (Version None)
Quarter: 2006Q3

REPORT INFORMATION
  Report Type: 
  Country: None (occurrence: None)
  Receive Date: 20060721
  Receipt Date: 20060703
  Transmission Date: 20061208
  Serious: Yes (Death)
  Sender: FDA-Public Use
  Company Number: 2006RR-02909

PATIENT
  Age: 44 Year
  Sex: Female

DRUGS (2)
  1. IBUPROFEN [Suspect]
     Dosage: ORAL
     Route: 048
  2. DIAZEPAM TABLETS (DIAZEPAM) [Concomitant]

REACTIONS (1)
  - OVERDOSE [None]
